FAERS Safety Report 6814735-4 (Version None)
Quarter: 2010Q3

REPORT INFORMATION
  Report Type: 
  Country: None (occurrence: None)
  Receive Date: 20100702
  Receipt Date: 20100625
  Transmission Date: 20110219
  Serious: Yes (Disabling)
  Sender: FDA-Public Use
  Company Number: GB-ROCHE-663531

PATIENT
  Age: 44 Year
  Sex: Female
  Weight: 83 kg

DRUGS (6)
  1. HERCEPTIN [Suspect]
     Indication: PRODUCT USED FOR UNKNOWN INDICATION
     Route: 065
     Dates: end: 20070215
  2. TAXOTERE [Suspect]
     Indication: BREAST CANCER
     Dosage: DRUG WITHDRAWN
     Route: 042
     Dates: start: 20060119, end: 20060323
  3. AMITRIPTYLINE HCL [Concomitant]
  4. CO-DYDRAMOL [Concomitant]
     Dosage: FREQUENCY: AS NECESSARY
  5. TRAMADOL HCL [Concomitant]
  6. VOLTAREN [Concomitant]
     Dates: start: 19940101

REACTIONS (6)
  - ARTHRALGIA [None]
  - CARPAL TUNNEL SYNDROME [None]
  - HYPOAESTHESIA [None]
  - MYALGIA [None]
  - NEUROPATHY PERIPHERAL [None]
  - SKIN EXFOLIATION [None]
